FAERS Safety Report 7438707-4 (Version None)
Quarter: 2011Q2

REPORT INFORMATION
  Report Type: 
  Country: None (occurrence: None)
  Receive Date: 20110426
  Receipt Date: 20110411
  Transmission Date: 20111010
  Serious: Yes (Hospitalization)
  Sender: FDA-Public Use
  Company Number: FR-PFIZER INC-2010008230

PATIENT
  Age: 55 Year
  Sex: Male

DRUGS (19)
  1. TAHOR [Suspect]
     Dosage: 10 MG, 1X/DAY
     Route: 048
  2. OXYNORM [Concomitant]
  3. DAFALGAN [Suspect]
     Dosage: UNK
     Route: 048
  4. NEXIUM [Concomitant]
  5. AMOXICILLIN [Concomitant]
  6. CHAMPIX [Concomitant]
  7. OXYCONTIN [Concomitant]
  8. CORDAREX [Suspect]
     Dosage: 1 DF, 1X/DAY
  9. FORLAX [Concomitant]
  10. CORTANCYL [Suspect]
     Dosage: 5 MG, 1X/DAY
     Route: 048
  11. PREVISCAN [Suspect]
     Dosage: 10 MG, 1X/DAY
     Route: 048
     Dates: end: 20091019
  12. NOVOMIX [Concomitant]
  13. LYRICA [Concomitant]
  14. TRIATEC [Concomitant]
  15. KARDEGIC [Suspect]
     Dosage: 75 MG, 1X/DAY
     Route: 048
  16. DIAMICRON [Concomitant]
  17. IMOVANE [Concomitant]
  18. DIFFU K [Concomitant]
  19. LASIX [Concomitant]

REACTIONS (2)
  - GASTROINTESTINAL HAEMORRHAGE [None]
  - ANAEMIA [None]
